FAERS Safety Report 25993582 (Version 1)
Quarter: 2025Q4

REPORT INFORMATION
  Report Type: Spontaneous
  Country: US (occurrence: US)
  Receive Date: 20251104
  Receipt Date: 20251104
  Transmission Date: 20260117
  Serious: No
  Sender: CELLTRION
  Company Number: US-CELLTRION INC.-2025US008470

PATIENT

DRUGS (1)
  1. INFLECTRA [Suspect]
     Active Substance: INFLIXIMAB-DYYB
     Indication: Product used for unknown indication
     Dosage: ORDERED DOSE: 700 MG, EVERY 4 WEEKS/7 VIALS OF INFLECTRA 100MG EACH WERE DILUTED WITH SWFI 10ML
     Route: 065
     Dates: start: 20250314, end: 20250314

REACTIONS (3)
  - Product contamination physical [Recovered/Resolved]
  - Product reconstitution quality issue [Unknown]
  - Incorrect dose administered [Recovered/Resolved]

NARRATIVE: CASE EVENT DATE: 20250314
